FAERS Safety Report 8763849 (Version 2)
Quarter: 2012Q4

REPORT INFORMATION
  Report Type: 
  Country: US (occurrence: US)
  Receive Date: 20120831
  Receipt Date: 20120921
  Transmission Date: 20130627
  Serious: Yes (Death)
  Sender: FDA-Public Use
  Company Number: PHEH2012US017054

PATIENT
  Sex: Male
  Weight: 169 kg

DRUGS (2)
  1. AFINITOR [Suspect]
     Indication: MALIGNANT NEOPLASM OF ISLETS OF LANGERHANS
     Dosage: 5 mg/day
     Route: 048
     Dates: start: 20110829
  2. OXYCONTIN [Concomitant]

REACTIONS (8)
  - Neoplasm progression [Fatal]
  - Malignant neoplasm progression [Fatal]
  - Muscle atrophy [Unknown]
  - Constipation [Unknown]
  - Nausea [Unknown]
  - Neutropenia [Unknown]
  - Thrombocytopenia [Unknown]
  - Rash [Unknown]
